FAERS Safety Report 7639347-4 (Version None)
Quarter: 2011Q3

REPORT INFORMATION
  Report Type: 
  Country: None (occurrence: None)
  Receive Date: 20110727
  Receipt Date: 20110720
  Transmission Date: 20111222
  Serious: Yes (Hospitalization)
  Sender: FDA-Public Use
  Company Number: CA-ABBOTT-11P-028-0839719-00

PATIENT
  Sex: Female
  Weight: 49.032 kg

DRUGS (16)
  1. OTHER MEDICATION [Suspect]
     Indication: PRODUCT USED FOR UNKNOWN INDICATION
     Dosage: UNKNOWN
  2. FOLIC ACID [Concomitant]
     Indication: VITAMIN SUPPLEMENTATION
     Route: 048
     Dates: start: 20080101, end: 20110610
  3. VALTREX [Concomitant]
     Indication: ORAL HERPES
     Route: 048
     Dates: start: 20080101
  4. PREDNISONE [Concomitant]
     Indication: CROHN'S DISEASE
  5. LYRICA [Concomitant]
     Indication: ANKYLOSING SPONDYLITIS
     Route: 048
     Dates: start: 20100101
  6. TRAZODONE HCL [Concomitant]
     Indication: SLEEP DISORDER THERAPY
     Route: 048
     Dates: start: 20110101
  7. GRAVOL TAB [Concomitant]
     Dosage: UNKNOWN
     Route: 054
     Dates: start: 20110608, end: 20110609
  8. PREDNISONE [Concomitant]
     Indication: ANKYLOSING SPONDYLITIS
     Route: 048
     Dates: start: 20080801
  9. ACTONEL [Concomitant]
     Indication: OSTEOPOROSIS
     Route: 048
     Dates: start: 20090101
  10. METHOTREXATE [Suspect]
     Indication: CROHN'S DISEASE
     Route: 058
     Dates: start: 20080101, end: 20110610
  11. SULFASALAZINE [Suspect]
     Indication: ANKYLOSING SPONDYLITIS
     Route: 048
     Dates: start: 20101201
  12. CARBOCAL [Concomitant]
     Indication: MINERAL SUPPLEMENTATION
     Dosage: 500 MG / 400 MG
     Route: 048
     Dates: start: 20080101
  13. HUMIRA [Suspect]
     Indication: CROHN'S DISEASE
     Dosage: UNKNOWN
     Route: 058
     Dates: start: 20090824
  14. TRAMADOL HYDROCHLORIDE/ACETAMINOPHEN [Concomitant]
     Indication: PRODUCT USED FOR UNKNOWN INDICATION
     Dosage: PRN
     Route: 048
     Dates: start: 20080101
  15. GRAVOL TAB [Concomitant]
     Indication: VOMITING
     Dosage: UNKNOWN
     Route: 048
     Dates: start: 20110607, end: 20110608
  16. GRAVOL TAB [Concomitant]
     Dosage: UNKNOWN
     Dates: start: 20110610, end: 20110610

REACTIONS (5)
  - VOMITING [None]
  - ADVERSE DRUG REACTION [None]
  - DIARRHOEA [None]
  - DEHYDRATION [None]
  - DRUG INTOLERANCE [None]
